FAERS Safety Report 5644914-3 (Version None)
Quarter: 2008Q1

REPORT INFORMATION
  Report Type: 
  Country: None (occurrence: None)
  Receive Date: 20080229
  Receipt Date: 20071029
  Transmission Date: 20080703
  Serious: No
  Sender: FDA-Public Use
  Company Number: A0688721A

PATIENT
  Age: 68 Year
  Sex: Male
  Weight: 68.2 kg

DRUGS (4)
  1. VALTREX [Suspect]
     Indication: DRUG USE FOR UNKNOWN INDICATION
     Route: 048
     Dates: start: 20071012, end: 20071013
  2. ALLOPURINOL [Concomitant]
  3. EYE OINTMENT [Concomitant]
  4. AMBIEN [Concomitant]

REACTIONS (2)
  - NAUSEA [None]
  - VOMITING [None]
